FAERS Safety Report 24808669 (Version 1)
Quarter: 2025Q1

REPORT INFORMATION
  Report Type: Spontaneous
  Country: IT (occurrence: IT)
  Receive Date: 20250106
  Receipt Date: 20250106
  Transmission Date: 20250409
  Serious: Yes (Life-Threatening, Hospitalization)
  Sender: ROCHE
  Company Number: None

PATIENT
  Age: 63 Year
  Sex: Male
  Weight: 80 kg

DRUGS (1)
  1. TECENTRIQ [Suspect]
     Active Substance: ATEZOLIZUMAB
     Indication: Hepatocellular carcinoma
     Route: 042
     Dates: start: 20230605, end: 20240923

REACTIONS (6)
  - Acute respiratory failure [Not Recovered/Not Resolved]
  - Autoimmune neuropathy [Recovering/Resolving]
  - Oxygen saturation decreased [Recovering/Resolving]
  - Encephalitis autoimmune [Not Recovered/Not Resolved]
  - Atrial flutter [Recovering/Resolving]
  - Immune thrombocytopenia [Recovering/Resolving]

NARRATIVE: CASE EVENT DATE: 20241111
